FAERS Safety Report 6679088-3 (Version None)
Quarter: 2010Q2

REPORT INFORMATION
  Report Type: 
  Country: None (occurrence: None)
  Receive Date: 20100402
  Receipt Date: 20061013
  Transmission Date: 20101027
  Serious: Yes (Hospitalization)
  Sender: FDA-Public Use
  Company Number: 23100352

PATIENT
  Age: 78 Year
  Sex: Male

DRUGS (1)
  1. ARGATROBAN [Suspect]

REACTIONS (2)
  - HAEMORRHAGE [None]
  - OVERDOSE [None]
